FAERS Safety Report 13224977 (Version 2)
Quarter: 2017Q1

REPORT INFORMATION
  Report Type: Spontaneous
  Country: FR (occurrence: FR)
  Receive Date: 20170213
  Receipt Date: 20170303
  Transmission Date: 20170428
  Serious: Yes (Hospitalization)
  Sender: FDA-Public Use
  Company Number: FR-ACCORD-048104

PATIENT
  Age: 71 Year
  Sex: Male

DRUGS (7)
  1. CALCIUM FOLINATE/FOLINIC ACID/SODIUM FOLINATE [Concomitant]
     Indication: COLORECTAL ADENOCARCINOMA
     Dates: start: 20161202
  2. PERINDOPRIL/PERINDOPRIL ERBUMINE [Concomitant]
  3. AVASTIN [Suspect]
     Active Substance: BEVACIZUMAB
     Indication: COLORECTAL ADENOCARCINOMA
     Dosage: STRENGTH: 25 MG/ML
     Route: 042
     Dates: start: 20161216
  4. TRAMADOL/TRAMADOL HYDROCHLORIDE [Concomitant]
  5. OXALIPLATIN HOSPIRA [Suspect]
     Active Substance: OXALIPLATIN
     Indication: COLORECTAL ADENOCARCINOMA
     Route: 042
     Dates: start: 20161202
  6. FLUOROURACIL ACCORD [Suspect]
     Active Substance: FLUOROURACIL
     Indication: COLORECTAL ADENOCARCINOMA
     Dosage: STRENGTH: 50 MG/ML
     Route: 042
     Dates: start: 20161202
  7. BROMAZEPAM [Concomitant]
     Active Substance: BROMAZEPAM

REACTIONS (4)
  - Shock haemorrhagic [Recovered/Resolved]
  - Haematemesis [Unknown]
  - Rectal haemorrhage [Unknown]
  - Hyperthermia [Unknown]

NARRATIVE: CASE EVENT DATE: 20161225
